FAERS Safety Report 10504266 (Version 4)
Quarter: 2015Q1

REPORT INFORMATION
  Report Type: Report from Study
  Country: JP (occurrence: JP)
  Receive Date: 20141008
  Receipt Date: 20150310
  Transmission Date: 20150720
  Serious: Yes (Other)
  Sender: FDA-Public Use
  Company Number: JP-ASTELLAS-2014JP022530

PATIENT
  Age: 15 Year
  Sex: Male
  Weight: 46 kg

DRUGS (44)
  1. TACROLIMUS. [Suspect]
     Active Substance: TACROLIMUS
     Route: 048
     Dates: start: 20110221, end: 20110314
  2. REMICADE [Concomitant]
     Active Substance: INFLIXIMAB
     Route: 042
     Dates: start: 20110428, end: 20110428
  3. REMICADE [Concomitant]
     Active Substance: INFLIXIMAB
     Route: 042
     Dates: start: 20121128, end: 20121128
  4. TACROLIMUS. [Suspect]
     Active Substance: TACROLIMUS
     Route: 048
     Dates: start: 20120117, end: 20120326
  5. TACROLIMUS. [Suspect]
     Active Substance: TACROLIMUS
     Route: 048
     Dates: start: 20121109, end: 20121120
  6. TACROLIMUS. [Suspect]
     Active Substance: TACROLIMUS
     Route: 048
     Dates: start: 20121121, end: 20130316
  7. REMICADE [Concomitant]
     Active Substance: INFLIXIMAB
     Route: 042
     Dates: start: 20100524, end: 20100524
  8. REMICADE [Concomitant]
     Active Substance: INFLIXIMAB
     Route: 042
     Dates: start: 20110603, end: 20110603
  9. REMICADE [Concomitant]
     Active Substance: INFLIXIMAB
     Route: 042
     Dates: start: 20111121, end: 20111121
  10. REMICADE [Concomitant]
     Active Substance: INFLIXIMAB
     Route: 042
     Dates: start: 20120815, end: 20120815
  11. TACROLIMUS. [Suspect]
     Active Substance: TACROLIMUS
     Route: 048
     Dates: start: 20130317, end: 20130328
  12. REMICADE [Concomitant]
     Active Substance: INFLIXIMAB
     Route: 042
     Dates: start: 20091022, end: 20091022
  13. REMICADE [Concomitant]
     Active Substance: INFLIXIMAB
     Route: 042
     Dates: start: 20111226, end: 20111226
  14. REMICADE [Concomitant]
     Active Substance: INFLIXIMAB
     Route: 042
     Dates: start: 20120606, end: 20120606
  15. REMICADE [Concomitant]
     Active Substance: INFLIXIMAB
     Route: 042
     Dates: start: 20120712, end: 20120712
  16. REMICADE [Concomitant]
     Active Substance: INFLIXIMAB
     Route: 042
     Dates: start: 20100406, end: 20100406
  17. REMICADE [Concomitant]
     Active Substance: INFLIXIMAB
     Route: 042
     Dates: start: 20100630, end: 20100630
  18. REMICADE [Concomitant]
     Active Substance: INFLIXIMAB
     Route: 042
     Dates: start: 20101102, end: 20101102
  19. REMICADE [Concomitant]
     Active Substance: INFLIXIMAB
     Route: 042
     Dates: start: 20110811, end: 20110811
  20. REMICADE [Concomitant]
     Active Substance: INFLIXIMAB
     Route: 042
     Dates: start: 20121025, end: 20121025
  21. REMICADE [Concomitant]
     Active Substance: INFLIXIMAB
     Route: 042
     Dates: start: 20130108, end: 20130108
  22. TACROLIMUS. [Suspect]
     Active Substance: TACROLIMUS
     Route: 048
     Dates: start: 20110215, end: 20110220
  23. TACROLIMUS. [Suspect]
     Active Substance: TACROLIMUS
     Route: 048
     Dates: start: 20120511, end: 20120529
  24. TACROLIMUS. [Suspect]
     Active Substance: TACROLIMUS
     Route: 048
     Dates: start: 20120530, end: 20120811
  25. REMICADE [Concomitant]
     Active Substance: INFLIXIMAB
     Route: 042
     Dates: start: 20091120, end: 20091120
  26. REMICADE [Concomitant]
     Active Substance: INFLIXIMAB
     Route: 042
     Dates: start: 20110912, end: 20110912
  27. REMICADE [Concomitant]
     Active Substance: INFLIXIMAB
     Route: 042
     Dates: start: 20111017, end: 20111017
  28. REMICADE [Concomitant]
     Active Substance: INFLIXIMAB
     Route: 042
     Dates: start: 20120201, end: 20120201
  29. TACROLIMUS. [Suspect]
     Active Substance: TACROLIMUS
     Route: 048
     Dates: start: 20110211, end: 20110214
  30. TACROLIMUS. [Suspect]
     Active Substance: TACROLIMUS
     Route: 048
     Dates: start: 20110315, end: 20120116
  31. REMICADE [Concomitant]
     Active Substance: INFLIXIMAB
     Route: 042
     Dates: start: 20100811, end: 20100811
  32. REMICADE [Concomitant]
     Active Substance: INFLIXIMAB
     Route: 042
     Dates: start: 20110712, end: 20110712
  33. REMICADE [Concomitant]
     Active Substance: INFLIXIMAB
     Route: 042
     Dates: start: 20120919, end: 20120919
  34. TACROLIMUS. [Suspect]
     Active Substance: TACROLIMUS
     Indication: CROHN^S DISEASE
     Route: 048
     Dates: start: 20110209, end: 20110210
  35. TACROLIMUS. [Suspect]
     Active Substance: TACROLIMUS
     Route: 048
     Dates: start: 20120327, end: 20120510
  36. TACROLIMUS. [Suspect]
     Active Substance: TACROLIMUS
     Route: 048
     Dates: start: 20130329
  37. REMICADE [Concomitant]
     Active Substance: INFLIXIMAB
     Indication: CROHN^S DISEASE
     Route: 042
     Dates: start: 20091007, end: 20091007
  38. REMICADE [Concomitant]
     Active Substance: INFLIXIMAB
     Route: 042
     Dates: start: 20100115, end: 20100115
  39. REMICADE [Concomitant]
     Active Substance: INFLIXIMAB
     Route: 042
     Dates: start: 20100302, end: 20100302
  40. REMICADE [Concomitant]
     Active Substance: INFLIXIMAB
     Route: 042
     Dates: start: 20100922, end: 20100922
  41. REMICADE [Concomitant]
     Active Substance: INFLIXIMAB
     Route: 042
     Dates: start: 20110209, end: 20110209
  42. REMICADE [Concomitant]
     Active Substance: INFLIXIMAB
     Route: 042
     Dates: start: 20120425, end: 20120425
  43. REMICADE [Concomitant]
     Active Substance: INFLIXIMAB
     Route: 042
     Dates: start: 20110325, end: 20110325
  44. REMICADE [Concomitant]
     Active Substance: INFLIXIMAB
     Route: 042
     Dates: start: 20120312, end: 20120312

REACTIONS (2)
  - Renal impairment [Recovering/Resolving]
  - Off label use [Unknown]

NARRATIVE: CASE EVENT DATE: 20110209
